FAERS Safety Report 5869867-4 (Version None)
Quarter: 2008Q3

REPORT INFORMATION
  Report Type: 
  Country: None (occurrence: None)
  Receive Date: 20080904
  Receipt Date: 20080902
  Transmission Date: 20090109
  Serious: Yes (Hospitalization)
  Sender: FDA-Public Use
  Company Number: FR-BRISTOL-MYERS SQUIBB COMPANY-14322101

PATIENT
  Age: 48 Year
  Sex: Male

DRUGS (6)
  1. VIDEX [Suspect]
     Indication: HIV INFECTION
     Route: 048
  2. EPIVIR [Suspect]
     Indication: HIV INFECTION
     Route: 048
  3. NORVIR [Suspect]
     Indication: HIV INFECTION
     Route: 048
  4. PREZISTA [Suspect]
     Indication: HIV INFECTION
     Route: 048
  5. ISENTRESS [Suspect]
     Indication: HIV INFECTION
     Route: 048
  6. ETRAVIRINE [Suspect]
     Route: 048

REACTIONS (2)
  - MYOCARDIAL INFARCTION [None]
  - VENTRICULAR TACHYCARDIA [None]
